FAERS Safety Report 25919407 (Version 1)
Quarter: 2025Q4

REPORT INFORMATION
  Report Type: Spontaneous
  Country: CN (occurrence: CN)
  Receive Date: 20251014
  Receipt Date: 20251014
  Transmission Date: 20260119
  Serious: Yes (Life-Threatening, Hospitalization, Other)
  Sender: RISING PHARMACEUTICALS
  Company Number: CN-RISINGPHARMA-CN-2025RISLIT00504

PATIENT
  Age: 37 Year
  Sex: Male

DRUGS (1)
  1. ETOMIDATE [Suspect]
     Active Substance: ETOMIDATE
     Indication: Anaesthesia
     Route: 042

REACTIONS (11)
  - Thyrotoxic crisis [Recovering/Resolving]
  - Myoclonus [Recovering/Resolving]
  - Condition aggravated [Recovering/Resolving]
  - Tachycardia [Recovered/Resolved]
  - Hypertension [Recovered/Resolved]
  - Altered state of consciousness [Recovered/Resolved]
  - Unresponsive to stimuli [Recovered/Resolved]
  - Stress [Recovered/Resolved]
  - Hyperhidrosis [Recovered/Resolved]
  - Muscular weakness [Recovered/Resolved]
  - Hypermetabolism [Recovered/Resolved]
